FAERS Safety Report 6434151-7 (Version None)
Quarter: 2009Q4

REPORT INFORMATION
  Report Type: 
  Country: None (occurrence: None)
  Receive Date: 20091110
  Receipt Date: 20081029
  Transmission Date: 20100525
  Serious: No
  Sender: FDA-Public Use
  Company Number: US-ASTRAZENECA-2009SE12153

PATIENT
  Age: 46 Year
  Sex: Female

DRUGS (1)
  1. PRILOSEC OTC [Suspect]
     Indication: GASTROOESOPHAGEAL REFLUX DISEASE
     Route: 048
     Dates: start: 20061029, end: 20081026

REACTIONS (3)
  - CHEST PAIN [None]
  - INCORRECT DRUG ADMINISTRATION DURATION [None]
  - PALPITATIONS [None]
